FAERS Safety Report 11156473 (Version 1)
Quarter: 2015Q2

REPORT INFORMATION
  Report Type: Spontaneous
  Country: US (occurrence: None)
  Receive Date: 20150601
  Receipt Date: 20150601
  Transmission Date: 20150821
  Serious: Yes (Disabling)
  Sender: FDA-Public Use
  Company Number: None

PATIENT
  Age: 25 Year
  Sex: Male

DRUGS (1)
  1. CIPRO [Suspect]
     Active Substance: CIPROFLOXACIN HYDROCHLORIDE
     Indication: PROSTATOMEGALY

REACTIONS (5)
  - Nausea [None]
  - Muscular weakness [None]
  - Dizziness [None]
  - Pain [None]
  - Burning sensation [None]

NARRATIVE: CASE EVENT DATE: 20150529
